FAERS Safety Report 4451947-1 (Version None)
Quarter: 2004Q3

REPORT INFORMATION
  Report Type: 
  Country: None (occurrence: None)
  Receive Date: 20040915
  Receipt Date: 20040915
  Transmission Date: 20050211
  Serious: Yes (Life-Threatening, Hospitalization)
  Sender: FDA-Public Use
  Company Number: None

PATIENT
  Age: 66 Year
  Sex: Male
  Weight: 54.5 kg

DRUGS (1)
  1. FENTANYL [Suspect]

REACTIONS (3)
  - HYPOTENSION [None]
  - HYPOXIA [None]
  - MENTAL STATUS CHANGES [None]
